FAERS Safety Report 7902922-3 (Version None)
Quarter: 2011Q4

REPORT INFORMATION
  Report Type: 
  Country: None (occurrence: None)
  Receive Date: 20111109
  Receipt Date: 20111103
  Transmission Date: 20120403
  Serious: Yes (Other)
  Sender: FDA-Public Use
  Company Number: US-JNJFOC-20111101694

PATIENT
  Sex: Female
  Weight: 52.16 kg

DRUGS (1)
  1. LEVAQUIN [Suspect]
     Indication: EAR INFECTION
     Route: 048
     Dates: start: 20110930, end: 20111005

REACTIONS (5)
  - SKIN DISCOLOURATION [None]
  - OEDEMA PERIPHERAL [None]
  - MUSCLE ATROPHY [None]
  - TENDON DISORDER [None]
  - TENDON PAIN [None]
